FAERS Safety Report 25433978 (Version 1)
Quarter: 2025Q2

REPORT INFORMATION
  Report Type: Spontaneous
  Country: US (occurrence: US)
  Receive Date: 20250613
  Receipt Date: 20250613
  Transmission Date: 20250716
  Serious: No
  Sender: LEO PHARM
  Company Number: US-LEO Pharma-380558

PATIENT
  Age: 17 Year
  Sex: Female

DRUGS (1)
  1. ADBRY [Suspect]
     Active Substance: TRALOKINUMAB-LDRM
     Indication: Dermatitis atopic
     Dosage: TREATMENT IS ONGOING
     Route: 058
     Dates: start: 202411

REACTIONS (3)
  - Dermatitis atopic [Unknown]
  - Conjunctivitis [Unknown]
  - Drug ineffective [Unknown]
